FAERS Safety Report 22335462 (Version 1)
Quarter: 2023Q2

REPORT INFORMATION
  Report Type: Spontaneous
  Country: GB (occurrence: GB)
  Receive Date: 20230518
  Receipt Date: 20230518
  Transmission Date: 20230722
  Serious: Yes (Other)
  Sender: FDA-Public Use
  Company Number: GB-MHRA-MED-202305091012396220-LZTPG

PATIENT
  Sex: Female
  Weight: 88 kg

DRUGS (2)
  1. SAXENDA [Suspect]
     Active Substance: LIRAGLUTIDE
     Indication: Weight control
     Dosage: 1.8
  2. SAXENDA [Suspect]
     Active Substance: LIRAGLUTIDE
     Dosage: 2.4
     Dates: end: 20230508

REACTIONS (3)
  - Anxiety [Recovering/Resolving]
  - Pruritus [Recovering/Resolving]
  - Abdominal pain [Recovering/Resolving]
